FAERS Safety Report 9678133 (Version 4)
Quarter: 2015Q1

REPORT INFORMATION
  Report Type: Spontaneous
  Country: US (occurrence: US)
  Receive Date: 20131108
  Receipt Date: 20150109
  Transmission Date: 20150721
  Serious: Yes (Death, Life-Threatening, Hospitalization, Disabling, Other)
  Sender: FDA-Public Use
  Company Number: US-009507513-1311USA003132

PATIENT
  Sex: Female
  Weight: 114.74 kg

DRUGS (3)
  1. JANUVIA [Suspect]
     Active Substance: SITAGLIPTIN PHOSPHATE
     Dosage: 100 MG, QD
     Route: 048
     Dates: start: 20120130, end: 20120219
  2. JANUVIA [Suspect]
     Active Substance: SITAGLIPTIN PHOSPHATE
     Indication: TYPE 2 DIABETES MELLITUS
     Dosage: 100 MG, QD
     Route: 048
     Dates: start: 20100702, end: 20100801
  3. JANUVIA [Suspect]
     Active Substance: SITAGLIPTIN PHOSPHATE
     Dosage: 100 MG, QD
     Route: 048
     Dates: start: 20121201, end: 201301

REACTIONS (27)
  - Pancreatobiliary sphincterotomy [Unknown]
  - Encephalopathy [Unknown]
  - Cardiomyopathy [Unknown]
  - Lung cancer metastatic [Unknown]
  - Sinus node dysfunction [Unknown]
  - Breast cancer stage I [Unknown]
  - Mastectomy [Unknown]
  - Breast operation [Unknown]
  - Hepatic calcification [Unknown]
  - Pancreatic cyst [Unknown]
  - Pancreatic carcinoma metastatic [Fatal]
  - Seizure [Unknown]
  - Invasive ductal breast carcinoma [Unknown]
  - Influenza [Unknown]
  - Pancreatitis [Unknown]
  - Bile duct stent insertion [Unknown]
  - Bile duct obstruction [Unknown]
  - Mammogram abnormal [Unknown]
  - Colon cancer metastatic [Unknown]
  - Cardiac pacemaker insertion [Unknown]
  - Cholelithiasis [Unknown]
  - Dizziness [Unknown]
  - Hepatic cancer metastatic [Unknown]
  - Pyrexia [Unknown]
  - Mental status changes [Unknown]
  - Diastolic dysfunction [Unknown]
  - Drug dependence [Unknown]

NARRATIVE: CASE EVENT DATE: 20110920
